FAERS Safety Report 11271132 (Version 1)
Quarter: 2015Q3

REPORT INFORMATION
  Report Type: Spontaneous
  Country: CN (occurrence: CN)
  Receive Date: 20150714
  Receipt Date: 20150714
  Transmission Date: 20151125
  Serious: Yes (Death, Congenital Anomaly)
  Sender: FDA-Public Use
  Company Number: CN-AMEDRA PHARMACEUTICALS LLC-2015AMD00143

PATIENT

DRUGS (1)
  1. ZENTEL [Suspect]
     Active Substance: ALBENDAZOLE
     Dosage: UNK UNK, ONCE
     Route: 064
     Dates: start: 201505, end: 201505

REACTIONS (3)
  - Foetal disorder [Fatal]
  - Abortion induced [None]
  - Congenital anomaly [None]

NARRATIVE: CASE EVENT DATE: 2015
